FAERS Safety Report 11932530 (Version 1)
Quarter: 2016Q1

REPORT INFORMATION
  Report Type: Spontaneous
  Country: US (occurrence: US)
  Receive Date: 20160120
  Receipt Date: 20160120
  Transmission Date: 20160526
  Serious: No
  Sender: FDA-Public Use
  Company Number: US-MEDA-2015120060

PATIENT
  Sex: Male
  Weight: 35 kg

DRUGS (1)
  1. CROMOLYN SODIUM. [Suspect]
     Active Substance: CROMOLYN SODIUM
     Indication: EOSINOPHIL COUNT INCREASED
     Route: 048

REACTIONS (2)
  - Off label use [Recovered/Resolved]
  - Emotional distress [Recovered/Resolved]
